FAERS Safety Report 5049288-7 (Version None)
Quarter: 2006Q3

REPORT INFORMATION
  Report Type: 
  Country: None (occurrence: None)
  Receive Date: 20060706
  Receipt Date: 20060620
  Transmission Date: 20061208
  Serious: Yes (Hospitalization)
  Sender: FDA-Public Use
  Company Number: 2006-01391

PATIENT
  Age: 67 Year
  Sex: Female

DRUGS (5)
  1. VELCADE [Suspect]
     Indication: MULTIPLE MYELOMA
     Dosage: 1.30 MG/M2,
     Dates: start: 20051007, end: 20060418
  2. DOXIL [Suspect]
     Indication: MULTIPLE MYELOMA
     Dosage: 30.00 MG/M2,
     Dates: start: 20051010, end: 20060410
  3. KALNORMIN (POTASSIUM CHLORIDE) [Concomitant]
  4. VASOCARDIN (METOPROLOL TARTRATE) [Concomitant]
  5. PRESTARIUM (PERINDOPRIL) [Concomitant]

REACTIONS (2)
  - GENERAL PHYSICAL HEALTH DETERIORATION [None]
  - PERFORMANCE STATUS DECREASED [None]
